FAERS Safety Report 23420152 (Version 1)
Quarter: 2024Q1

REPORT INFORMATION
  Report Type: Spontaneous
  Country: US (occurrence: US)
  Receive Date: 20240119
  Receipt Date: 20240119
  Transmission Date: 20240409
  Serious: Yes (Other)
  Sender: FDA-Public Use
  Company Number: US-HIKMA PHARMACEUTICALS USA INC.-US-H14001-24-00191

PATIENT

DRUGS (1)
  1. HALOPERIDOL [Suspect]
     Active Substance: HALOPERIDOL
     Indication: Cannabinoid hyperemesis syndrome
     Dosage: ONE DOSE
     Route: 065

REACTIONS (3)
  - Agitation [Recovering/Resolving]
  - Cannabinoid hyperemesis syndrome [Recovering/Resolving]
  - Condition aggravated [Recovering/Resolving]
